FAERS Safety Report 5643407-7 (Version None)
Quarter: 2008Q1

REPORT INFORMATION
  Report Type: 
  Country: None (occurrence: None)
  Receive Date: 20080228
  Receipt Date: 20080218
  Transmission Date: 20080703
  Serious: Yes (Other)
  Sender: FDA-Public Use
  Company Number: US-ELI_LILLY_AND_COMPANY-US200802004646

PATIENT
  Age: 11 Year
  Sex: Male
  Weight: 37.188 kg

DRUGS (3)
  1. STRATTERA [Suspect]
     Dosage: 25 MG, UNK
  2. STRATTERA [Suspect]
     Dosage: 40 MG, UNK
  3. STRATTERA [Suspect]
     Dosage: 50 MG, UNK

REACTIONS (1)
  - GLAUCOMA [None]
